FAERS Safety Report 21882553 (Version 2)
Quarter: 2023Q1

REPORT INFORMATION
  Report Type: Report from Study
  Country: US (occurrence: US)
  Receive Date: 20230119
  Receipt Date: 20230120
  Transmission Date: 20230418
  Serious: No
  Sender: FDA-Public Use
  Company Number: US-Accord-272450

PATIENT
  Sex: Female

DRUGS (4)
  1. CLOZAPINE [Suspect]
     Active Substance: CLOZAPINE
     Indication: Bipolar disorder
     Dosage: 200MG BEDTIME
  2. RISPERIDONE [Concomitant]
     Active Substance: RISPERIDONE
     Dosage: 4MG ONCE A DAY BEDTIME
  3. LISINOPRIL [Concomitant]
     Active Substance: LISINOPRIL
     Dosage: 2.5MG ONCE A DAY
  4. METOPROLOL [Concomitant]
     Active Substance: METOPROLOL
     Dosage: 50MG/ONCE A DAY

REACTIONS (1)
  - COVID-19 [Unknown]
